FAERS Safety Report 15784439 (Version 2)
Quarter: 2019Q1

REPORT INFORMATION
  Report Type: Spontaneous
  Country: US (occurrence: US)
  Receive Date: 20190103
  Receipt Date: 20190107
  Transmission Date: 20190417
  Serious: No
  Sender: FDA-Public Use
  Company Number: US-PHARMING-PHAUS2018000853

PATIENT

DRUGS (11)
  1. TAKHZYRO [Concomitant]
     Active Substance: LANADELUMAB-FLYO
  2. STERILE WATER [Concomitant]
     Active Substance: WATER
  3. NATURE-THROID [Concomitant]
     Active Substance: THYROID, PORCINE
  4. FIRAZYR [Concomitant]
     Active Substance: ICATIBANT ACETATE
  5. DIPHENHYDRAMINE. [Concomitant]
     Active Substance: DIPHENHYDRAMINE
  6. SODIUM CHLORIDE. [Concomitant]
     Active Substance: SODIUM CHLORIDE
  7. EPINEPHRINE. [Concomitant]
     Active Substance: EPINEPHRINE
  8. LAMOTRIGINE. [Concomitant]
     Active Substance: LAMOTRIGINE
  9. DULOXETINE. [Concomitant]
     Active Substance: DULOXETINE
  10. RUCONEST [Suspect]
     Active Substance: HUMAN C1-ESTERASE INHIBITOR
     Indication: HEREDITARY ANGIOEDEMA
     Dosage: 4100 IU, AS NEEDED
     Route: 042
     Dates: start: 20180706
  11. OMEPRAZOLE. [Concomitant]
     Active Substance: OMEPRAZOLE

REACTIONS (1)
  - Hereditary angioedema [Unknown]

NARRATIVE: CASE EVENT DATE: 2018
